FAERS Safety Report 4770956-6 (Version None)
Quarter: 2005Q3

REPORT INFORMATION
  Report Type: 
  Country: None (occurrence: None)
  Receive Date: 20050915
  Receipt Date: 20050613
  Transmission Date: 20060218
  Serious: No
  Sender: FDA-Public Use
  Company Number: PHEH2005US06678

PATIENT
  Age: 70 Year
  Sex: Female

DRUGS (6)
  1. PROTONIX [Concomitant]
     Dosage: 40 MG, QD
     Route: 048
  2. REGLAN [Concomitant]
     Dosage: 10 MG, TID
     Route: 048
  3. FOSAMAX [Concomitant]
     Dosage: WEEKLY
     Route: 048
  4. GLEEVEC [Suspect]
     Indication: GASTROINTESTINAL STROMAL TUMOUR
     Dosage: 200 MG, QD
     Route: 048
     Dates: start: 20050416, end: 20050517
  5. GLEEVEC [Suspect]
     Dosage: 400 MG, QD
     Route: 048
     Dates: start: 20050518, end: 20050612
  6. GLEEVEC [Suspect]
     Dosage: 200 MG, QD
     Route: 048
     Dates: start: 20050601

REACTIONS (5)
  - DIZZINESS [None]
  - HEADACHE [None]
  - HYPOAESTHESIA [None]
  - LACRIMATION INCREASED [None]
  - VISION BLURRED [None]
